FAERS Safety Report 6882685-3 (Version None)
Quarter: 2010Q3

REPORT INFORMATION
  Report Type: 
  Country: None (occurrence: None)
  Receive Date: 20100727
  Receipt Date: 20100714
  Transmission Date: 20110219
  Serious: Yes (Other)
  Sender: FDA-Public Use
  Company Number: 7011173

PATIENT
  Age: 50 Year
  Sex: Female
  Weight: 50 kg

DRUGS (3)
  1. REBIF [Suspect]
     Indication: MULTIPLE SCLEROSIS
     Dosage: 44 MCG, 3 IN 1 WK, SUBCUTANEOUS
     Route: 058
     Dates: start: 20060614
  2. TOPROL-XL [Concomitant]
  3. PRINZIDE (PRINZIDE /00977901/) [Concomitant]

REACTIONS (5)
  - CONDITION AGGRAVATED [None]
  - FLUSHING [None]
  - INFLUENZA LIKE ILLNESS [None]
  - PAIN [None]
  - UTERINE LEIOMYOMA [None]
